FAERS Safety Report 9037169 (Version 1)
Quarter: 2013Q1

REPORT INFORMATION
  Report Type: Spontaneous
  Country: US (occurrence: None)
  Receive Date: 20130111
  Receipt Date: 20130111
  Transmission Date: 20140127
  Serious: Yes (Other)
  Sender: FDA-Public Use
  Company Number: 2013034381

PATIENT
  Sex: Male

DRUGS (1)
  1. CARIMUNE (IMMUNE GLOBULIN INTRAVENOUS (HUMAN) [Suspect]
     Indication: CHRONIC INFLAMMATORY DEMYELINATING POLYRADICULONEUROPATHY
     Dosage: 6 GM
     Route: 042
     Dates: start: 20121212

REACTIONS (2)
  - Drug ineffective [None]
  - Off label use [None]
